FAERS Safety Report 7201198-2 (Version None)
Quarter: 2010Q4

REPORT INFORMATION
  Report Type: 
  Country: None (occurrence: None)
  Receive Date: 20101227
  Receipt Date: 20101227
  Transmission Date: 20110411
  Serious: Yes (Death)
  Sender: FDA-Public Use
  Company Number: None

PATIENT
  Age: 21 Year
  Sex: Male
  Weight: 64.4108 kg

DRUGS (2)
  1. PROZAC [Suspect]
     Indication: DYSTHYMIC DISORDER
     Dosage: 20MG 1 PO
     Route: 048
     Dates: start: 20101129, end: 20101214
  2. TRAZODONE HCL [Suspect]
     Indication: DEPRESSION
     Dosage: 50MG 1 PO
     Route: 048
     Dates: start: 20101104, end: 20101204

REACTIONS (1)
  - COMPLETED SUICIDE [None]
